FAERS Safety Report 6283985-0 (Version None)
Quarter: 2009Q3

REPORT INFORMATION
  Report Type: 
  Country: None (occurrence: None)
  Receive Date: 20090722
  Receipt Date: 20090706
  Transmission Date: 20100115
  Serious: Yes (Death)
  Sender: FDA-Public Use
  Company Number: 325339

PATIENT
  Age: 60 Year
  Sex: Male

DRUGS (3)
  1. PHENYTOIN [Suspect]
     Indication: EPILEPSY
     Dosage: 100 MG, 3 DAY, INTRAVENOUS
     Route: 042
     Dates: start: 20090213, end: 20090314
  2. NIFEDIPINE [Concomitant]
  3. (PARACETAMOL) [Concomitant]

REACTIONS (3)
  - RASH GENERALISED [None]
  - SKIN REACTION [None]
  - TOXIC EPIDERMAL NECROLYSIS [None]
